FAERS Safety Report 5207724-7 (Version None)
Quarter: 2006Q4

REPORT INFORMATION
  Report Type: 
  Country: None (occurrence: None)
  Receive Date: 20061030
  Receipt Date: 20060906
  Transmission Date: 20070319
  Serious: No
  Sender: FDA-Public Use
  Company Number: 2006CT000722

PATIENT
  Age: 38 Year
  Sex: Female
  Weight: 140.6151 kg

DRUGS (5)
  1. VENTAVIS [Suspect]
     Indication: PULMONARY HYPERTENSION
     Dosage: 5 UG; TO 6X/DA; INH
     Route: 055
     Dates: start: 20060315, end: 20060406
  2. VENTAVIS [Suspect]
     Indication: PULMONARY HYPERTENSION
     Dosage: 5 UG; TO 6X/DA; INH
     Route: 055
     Dates: start: 20060707
  3. SILDENAFIL CITRATE [Suspect]
     Dosage: 20 MG; TID; PO
     Route: 048
  4. ALBUTEROL [Concomitant]
  5. LORTAB [Concomitant]

REACTIONS (3)
  - CONDITION AGGRAVATED [None]
  - DYSPNOEA [None]
  - EPISTAXIS [None]
